FAERS Safety Report 19119546 (Version 4)
Quarter: 2024Q4

REPORT INFORMATION
  Report Type: Spontaneous
  Country: CA (occurrence: CA)
  Receive Date: 20210412
  Receipt Date: 20241120
  Transmission Date: 20250114
  Serious: Yes (Death, Other)
  Sender: CSL BEHRING
  Company Number: CA-BEH-2021130232

PATIENT
  Age: 64 Year
  Sex: Female

DRUGS (11)
  1. ALBUREX [Suspect]
     Active Substance: ALBUMIN HUMAN
     Indication: Product used for unknown indication
     Dosage: 100 MILLILITER (4/4 FRACTION) / 30 CC/HR
     Route: 065
     Dates: start: 20200229, end: 20200229
  2. ALBUREX [Suspect]
     Active Substance: ALBUMIN HUMAN
     Dosage: 100 MILLILITER, 130CC/H FOR 15 MINUTES, THEN RATE INCREASED TO 120
     Route: 065
     Dates: start: 20200229, end: 20200301
  3. ALBUREX [Suspect]
     Active Substance: ALBUMIN HUMAN
     Dosage: UNK
     Route: 065
     Dates: start: 20200301, end: 20200301
  4. LASIX [Concomitant]
     Active Substance: FUROSEMIDE
     Dosage: 20 MILLIGRAM, TID
     Route: 042
     Dates: start: 20200229
  5. LASIX [Concomitant]
     Active Substance: FUROSEMIDE
     Dosage: 20 MILLIGRAM, TOT
     Route: 042
     Dates: start: 20200229
  6. LASIX [Concomitant]
     Active Substance: FUROSEMIDE
     Dosage: 20 MILLIGRAM, TOT
     Route: 042
     Dates: start: 20200229, end: 20200301
  7. LASIX [Concomitant]
     Active Substance: FUROSEMIDE
     Dosage: 20 MILLIGRAM, TOT
     Route: 042
     Dates: start: 20200301
  8. MORPHINE [Concomitant]
     Active Substance: MORPHINE
     Indication: Back pain
     Dosage: UNK
     Route: 065
     Dates: start: 20200229
  9. MORPHINE [Concomitant]
     Active Substance: MORPHINE
     Indication: Abdominal pain
     Dosage: 25 MILLIGRAM, TOT
     Route: 058
     Dates: start: 20200229
  10. HUMAN RED BLOOD CELL [Concomitant]
     Active Substance: HUMAN RED BLOOD CELL
     Indication: Haemoglobin decreased
  11. PIPERACILLIN SODIUM\TAZOBACTAM SODIUM [Concomitant]
     Active Substance: PIPERACILLIN SODIUM\TAZOBACTAM SODIUM
     Dosage: UNK
     Route: 065
     Dates: start: 20200213

REACTIONS (13)
  - Death [Fatal]
  - Shock [Unknown]
  - Acute pulmonary oedema [Unknown]
  - Dyspnoea [Unknown]
  - Tachypnoea [Unknown]
  - Wheezing [Unknown]
  - Pyrexia [Unknown]
  - Febrile nonhaemolytic transfusion reaction [Unknown]
  - Dyspepsia [Recovered/Resolved]
  - Abdominal pain [Unknown]
  - Dyspnoea exertional [Unknown]
  - Dizziness [Unknown]
  - Oxygen saturation decreased [Unknown]

NARRATIVE: CASE EVENT DATE: 20200229
